FAERS Safety Report 5146830-2 (Version None)
Quarter: 2006Q4

REPORT INFORMATION
  Report Type: 
  Country: None (occurrence: None)
  Receive Date: 20061109
  Receipt Date: 20060904
  Transmission Date: 20070319
  Serious: Yes (Hospitalization)
  Sender: FDA-Public Use
  Company Number: BR-MERCK-0609BRA00002

PATIENT
  Age: 94 Year
  Sex: Female
  Weight: 65 kg

DRUGS (9)
  1. VYTORIN [Suspect]
     Indication: HYPERCHOLESTEROLAEMIA
     Route: 048
     Dates: start: 20060723, end: 20060823
  2. VYTORIN [Suspect]
     Route: 048
     Dates: start: 20060903
  3. GLYBURIDE AND METFORMIN HYDROCHLORIDE [Concomitant]
     Indication: DIABETES MELLITUS
     Route: 048
  4. VALSARTAN [Concomitant]
     Indication: HYPERTENSION
     Route: 048
  5. ISOSORBIDE MONONITRATE [Concomitant]
     Indication: CORONARY ARTERY INSUFFICIENCY
     Route: 048
  6. INDAPAMIDE [Concomitant]
     Indication: HYPERTENSION
     Route: 048
  7. HYDRALAZINE HCL [Concomitant]
     Indication: HYPERTENSION
     Route: 048
  8. DILTIAZEM HCL [Concomitant]
     Indication: HYPERTENSION
     Route: 048
  9. AMILORIDE HYDROCHLORIDE AND HYDROCHLOROTHIAZIDE [Concomitant]
     Indication: HYPERTENSION
     Route: 048

REACTIONS (4)
  - ASTHENIA [None]
  - DRUG ADMINISTRATION ERROR [None]
  - MUSCLE SPASMS [None]
  - RENAL FAILURE [None]
